FAERS Safety Report 21354321 (Version 2)
Quarter: 2022Q4

REPORT INFORMATION
  Report Type: Report from Study
  Country: KR (occurrence: KR)
  Receive Date: 20220920
  Receipt Date: 20221021
  Transmission Date: 20230113
  Serious: Yes (Death, Hospitalization, Other)
  Sender: FDA-Public Use
  Company Number: KR-BRISTOL-MYERS SQUIBB COMPANY-2022-108823

PATIENT
  Age: 45 Year
  Sex: Female

DRUGS (2)
  1. YERVOY [Suspect]
     Active Substance: IPILIMUMAB
     Indication: Hepatocellular carcinoma
     Dosage: UNITS: MG/ML  200/40 MG/ML, ONCE
     Route: 042
     Dates: start: 20220906, end: 20220906
  2. OPDIVO [Suspect]
     Active Substance: NIVOLUMAB
     Indication: Hepatocellular carcinoma
     Dosage: 60/6  MG/ML, ONCE
     Route: 042
     Dates: start: 20220906, end: 20220906

REACTIONS (1)
  - Death [Fatal]
